FAERS Safety Report 7425548-7 (Version None)
Quarter: 2011Q2

REPORT INFORMATION
  Report Type: 
  Country: None (occurrence: None)
  Receive Date: 20110420
  Receipt Date: 20110411
  Transmission Date: 20111010
  Serious: Yes (Hospitalization)
  Sender: FDA-Public Use
  Company Number: FR-ASTRAZENECA-2011SE21035

PATIENT
  Age: 47 Year
  Sex: Female

DRUGS (4)
  1. NEORAL [Suspect]
     Route: 048
     Dates: start: 20100401, end: 20100531
  2. NEORAL [Suspect]
     Route: 048
     Dates: start: 20090501, end: 20100401
  3. PRAVASTATIN [Suspect]
     Route: 048
     Dates: start: 20091101, end: 20100501
  4. CRESTOR [Suspect]
     Route: 048
     Dates: start: 20100501, end: 20100726

REACTIONS (2)
  - BLOOD CREATINE PHOSPHOKINASE INCREASED [None]
  - RENAL FAILURE [None]
